FAERS Safety Report 5722308-X (Version None)
Quarter: 2008Q2

REPORT INFORMATION
  Report Type: 
  Country: None (occurrence: None)
  Receive Date: 20080429
  Receipt Date: 20070913
  Transmission Date: 20081010
  Serious: No
  Sender: FDA-Public Use
  Company Number: US-ASTRAZENECA-2007UW21718

PATIENT
  Age: 65 Year
  Sex: Female
  Weight: 79.4 kg

DRUGS (1)
  1. NEXIUM [Suspect]
     Indication: STOMACH DISCOMFORT
     Route: 048
     Dates: start: 20070910

REACTIONS (1)
  - BLOOD GLUCOSE INCREASED [None]
